FAERS Safety Report 17745524 (Version 1)
Quarter: 2020Q2

REPORT INFORMATION
  Report Type: Spontaneous
  Country: US (occurrence: US)
  Receive Date: 20200505
  Receipt Date: 20200505
  Transmission Date: 20200714
  Serious: Yes (Other)
  Sender: FDA-Public Use
  Company Number: US-NOVOPROD-725463

PATIENT
  Sex: Female

DRUGS (1)
  1. INSULIN ASPART INJECTION [Suspect]
     Active Substance: INSULIN ASPART
     Indication: PRODUCT USED FOR UNKNOWN INDICATION
     Dosage: UNK
     Route: 058

REACTIONS (4)
  - Cardiac disorder [Unknown]
  - Visual impairment [Unknown]
  - Arthritis [Unknown]
  - Urticaria [Unknown]
